FAERS Safety Report 24246597 (Version 1)
Quarter: 2024Q3

REPORT INFORMATION
  Report Type: Report from Study
  Country: DE (occurrence: DE)
  Receive Date: 20240825
  Receipt Date: 20240825
  Transmission Date: 20241017
  Serious: Yes (Other)
  Sender: ABBVIE
  Company Number: DE-ABBVIE-5889735

PATIENT
  Age: 70 Year
  Sex: Female
  Weight: 103 kg

DRUGS (3)
  1. HUMIRA [Suspect]
     Active Substance: ADALIMUMAB
     Indication: Rheumatoid arthritis
     Dosage: FORM STRENGTH: 40 MG
     Route: 058
     Dates: start: 20110627, end: 2020
  2. MORPHINE [Concomitant]
     Active Substance: MORPHINE
     Indication: Vasculitis
     Route: 048
     Dates: start: 2002
  3. CORTISONE [Concomitant]
     Active Substance: CORTISONE
     Indication: Vasculitis
     Route: 048
     Dates: start: 2002

REACTIONS (5)
  - Systemic lupus erythematosus [Recovered/Resolved]
  - Spondylitis [Recovered/Resolved]
  - Musculoskeletal stiffness [Not Recovered/Not Resolved]
  - Type 2 diabetes mellitus [Not Recovered/Not Resolved]
  - Contrast media allergy [Unknown]

NARRATIVE: CASE EVENT DATE: 20190101
